FAERS Safety Report 17293339 (Version 1)
Quarter: 2020Q1

REPORT INFORMATION
  Report Type: Spontaneous
  Country: ES (occurrence: ES)
  Receive Date: 20200121
  Receipt Date: 20200121
  Transmission Date: 20200409
  Serious: Yes (Hospitalization)
  Sender: FDA-Public Use
  Company Number: ES-TEVA-2020-ES-1169737

PATIENT
  Age: 79 Year
  Sex: Female

DRUGS (1)
  1. INDAPAMIDA (1776A) [Suspect]
     Active Substance: INDAPAMIDE
     Dosage: 1.5 MILLIGRAM DAILY; 1.5 MG DAY
     Route: 048
     Dates: start: 20190630, end: 20190802

REACTIONS (2)
  - Hyponatraemia [Recovered/Resolved]
  - Seizure [Recovered/Resolved]

NARRATIVE: CASE EVENT DATE: 20190802
